FAERS Safety Report 5917886-1 (Version None)
Quarter: 2008Q4

REPORT INFORMATION
  Report Type: 
  Country: None (occurrence: None)
  Receive Date: 20081014
  Receipt Date: 20071009
  Transmission Date: 20090506
  Serious: No
  Sender: FDA-Public Use
  Company Number: US-ABBOTT-07P-163-0420374-00

PATIENT

DRUGS (9)
  1. LOPINAVIR AND RITONAVIR [Suspect]
     Indication: DRUG USE FOR UNKNOWN INDICATION
  2. RITONAVIR [Suspect]
     Indication: DRUG USE FOR UNKNOWN INDICATION
  3. RITONAVIR [Suspect]
  4. ATAZANAVIR SULFATE [Suspect]
     Indication: DRUG USE FOR UNKNOWN INDICATION
  5. ATAZANAVIR SULFATE [Suspect]
  6. PROCHLORPERAZINE [Concomitant]
     Indication: DRUG USE FOR UNKNOWN INDICATION
  7. LOPERAMIDE HCL [Concomitant]
     Indication: DRUG USE FOR UNKNOWN INDICATION
  8. TRAZODONE HCL [Concomitant]
     Indication: DRUG USE FOR UNKNOWN INDICATION
  9. ACETAMINOPHEN [Concomitant]
     Indication: DRUG USE FOR UNKNOWN INDICATION

REACTIONS (1)
  - BLOOD TRIGLYCERIDES INCREASED [None]
